FAERS Safety Report 11678240 (Version 3)
Quarter: 2015Q4

REPORT INFORMATION
  Report Type: Spontaneous
  Country: US (occurrence: US)
  Receive Date: 20151027
  Receipt Date: 20151110
  Transmission Date: 20160304
  Serious: No
  Sender: FDA-Public Use
  Company Number: US-ELI_LILLY_AND_COMPANY-US201010005772

PATIENT
  Age: 70 Year
  Sex: Female

DRUGS (7)
  1. VITAMIN B [Concomitant]
     Active Substance: VITAMIN B
     Indication: ANAEMIA
     Dosage: UNK, WEEKLY (1/W)
     Dates: start: 20101008
  2. TYLENOL ARTHRITIS PAIN [Concomitant]
     Active Substance: ACETAMINOPHEN
     Indication: ARTHRITIS
     Dosage: UNK, AS NEEDED
  3. FORTEO [Suspect]
     Active Substance: TERIPARATIDE
     Dosage: 20 UG, QD
     Route: 065
  4. IRON [Concomitant]
     Active Substance: IRON
     Indication: ANAEMIA
     Dosage: UNK, WEEKLY (1/W)
     Dates: start: 20101008
  5. FORTEO [Suspect]
     Active Substance: TERIPARATIDE
     Dosage: 20 UG, QD
  6. FORTEO [Suspect]
     Active Substance: TERIPARATIDE
     Dosage: 20 UG, QD
     Dates: start: 201204
  7. FORTEO [Suspect]
     Active Substance: TERIPARATIDE
     Indication: OSTEOPOROSIS
     Dosage: 20 UG, DAILY (1/D)
     Dates: start: 20101013

REACTIONS (19)
  - Headache [Recovering/Resolving]
  - Arthralgia [Not Recovered/Not Resolved]
  - Mass [Unknown]
  - Lower extremity mass [Unknown]
  - Asthenia [Recovering/Resolving]
  - Decreased activity [Unknown]
  - Limb discomfort [Unknown]
  - Chest pain [Recovering/Resolving]
  - Intentional product misuse [Not Recovered/Not Resolved]
  - Dysphonia [Recovering/Resolving]
  - Bone pain [Unknown]
  - Cough [Recovering/Resolving]
  - Asthenia [Unknown]
  - Muscle spasms [Recovering/Resolving]
  - Muscle spasms [Unknown]
  - Facial pain [Recovering/Resolving]
  - Cardiac stress test abnormal [Unknown]
  - Catheterisation cardiac [Recovered/Resolved]
  - Dyspnoea [Recovering/Resolving]

NARRATIVE: CASE EVENT DATE: 201010
